FAERS Safety Report 9640384 (Version 3)
Quarter: 2014Q1

REPORT INFORMATION
  Report Type: Report from Study
  Country: DE (occurrence: DE)
  Receive Date: 20131023
  Receipt Date: 20140312
  Transmission Date: 20141002
  Serious: Yes (Hospitalization, Other)
  Sender: FDA-Public Use
  Company Number: DE-UCBSA-100456

PATIENT
  Age: 56 Year
  Sex: Male

DRUGS (16)
  1. CIMZIA [Suspect]
     Indication: RHEUMATOID ARTHRITIS
     Route: 058
     Dates: start: 20110610, end: 201308
  2. MICARDIS P [Concomitant]
     Indication: HYPERTENSION
     Dosage: DOSE : 80/12.5; ROUTE: 144
     Dates: start: 200707
  3. METOHEXAL [Concomitant]
     Dosage: DOSE: 95
  4. ASPIRIN PROTECT [Concomitant]
  5. METFORMIN [Concomitant]
     Indication: DIABETES MELLITUS
     Dosage: ROUTE: 144
     Dates: start: 201101
  6. CYMBALTA [Concomitant]
     Indication: DEPRESSION
     Dosage: ROUTE: 144
     Dates: start: 20120604
  7. IBUHEXAL [Concomitant]
  8. PREDNISOLON AS [Concomitant]
  9. BELOK-ZOK [Concomitant]
     Indication: MYOCARDIAL INFARCTION
     Dosage: ROUTE: 144
     Dates: start: 200004
  10. CITALOPRAM [Concomitant]
     Indication: DEPRESSION
     Dosage: ROUTE: 144
     Dates: start: 20110218, end: 20120603
  11. PREDNISOLONE [Concomitant]
     Indication: RHEUMATOID ARTHRITIS
     Dosage: ROUTE: 144
     Dates: start: 20110610, end: 20110624
  12. PREDNISOLONE [Concomitant]
     Indication: RHEUMATOID ARTHRITIS
     Dosage: ROUTE : 144
     Dates: start: 20110625
  13. PANTORC [Concomitant]
     Indication: GASTROOESOPHAGEAL REFLUX DISEASE
     Dosage: 20 MG AS REQUIRED; ROUTE: 144
     Dates: start: 20090408
  14. IBUPROFEN [Concomitant]
     Indication: RHEUMATOID ARTHRITIS
     Dosage: 400 MG AS REQUIRED; ROUTE: 144
     Dates: start: 201111
  15. ASS [Concomitant]
     Indication: MYOCARDIAL INFARCTION
     Dosage: ROUTE: 144
     Dates: start: 200004
  16. INFLUVAC [Concomitant]
     Indication: INFLUENZA IMMUNISATION
     Dosage: FORMULATION: 65, TYPE OF VACCINATION: 2
     Dates: start: 20121016

REACTIONS (2)
  - Chest pain [Recovered/Resolved]
  - Herpes zoster [Recovered/Resolved]
